FAERS Safety Report 6987984-2 (Version None)
Quarter: 2010Q3

REPORT INFORMATION
  Report Type: 
  Country: None (occurrence: None)
  Receive Date: 20100830
  Receipt Date: 20090629
  Transmission Date: 20110219
  Serious: No
  Sender: FDA-Public Use
  Company Number: 2009-00325

PATIENT
  Age: 66 Year
  Sex: Female
  Weight: 145.151 kg

DRUGS (4)
  1. ZICAM COLD REMEDY RAPIDMELTS [Suspect]
     Dosage: TID X 8 DAYS
     Dates: start: 20090510, end: 20090518
  2. ASPIRIN [Concomitant]
  3. NORVASC [Concomitant]
  4. MULTI-VITAMIN [Concomitant]

REACTIONS (2)
  - AGEUSIA [None]
  - ANOSMIA [None]
